FAERS Safety Report 14324329 (Version 2)
Quarter: 2018Q1

REPORT INFORMATION
  Report Type: Spontaneous
  Country: FR (occurrence: FR)
  Receive Date: 20171226
  Receipt Date: 20180102
  Transmission Date: 20180509
  Serious: Yes (Hospitalization)
  Sender: FDA-Public Use
  Company Number: FR-JNJFOC-20171227732

PATIENT
  Age: 85 Year
  Sex: Female

DRUGS (3)
  1. IBRUTINIB [Suspect]
     Active Substance: IBRUTINIB
     Indication: B-CELL LYMPHOMA
     Route: 048
     Dates: start: 201705, end: 201707
  2. ZELITREX [Suspect]
     Active Substance: VALACYCLOVIR HYDROCHLORIDE
     Indication: ANTIVIRAL PROPHYLAXIS
     Route: 048
     Dates: start: 201707
  3. DEPAKINE [Suspect]
     Active Substance: VALPROATE SODIUM
     Indication: EPILEPSY
     Route: 048
     Dates: end: 201707

REACTIONS (3)
  - Incorrect dose administered [Unknown]
  - Off label use [Unknown]
  - Cholestasis [Recovering/Resolving]

NARRATIVE: CASE EVENT DATE: 201705
